FAERS Safety Report 7052655-3 (Version None)
Quarter: 2010Q4

REPORT INFORMATION
  Report Type: 
  Country: None (occurrence: None)
  Receive Date: 20101019
  Receipt Date: 20101007
  Transmission Date: 20110411
  Serious: Yes (Hospitalization, Other)
  Sender: FDA-Public Use
  Company Number: ES-AMGEN INC.-QUU407706

PATIENT

DRUGS (6)
  1. MIMPARA [Suspect]
     Indication: HYPERPARATHYROIDISM PRIMARY
     Dosage: 30 MG, Q12H
     Route: 048
     Dates: start: 20100216
  2. ACTONEL [Concomitant]
     Dosage: UNK UNK, QWK
     Route: 048
     Dates: start: 20060101
  3. CALCIFEDIOL [Concomitant]
     Dosage: 266 A?G, UNK
     Route: 048
     Dates: start: 20100216
  4. FINASTERIDE [Concomitant]
     Dosage: UNK UNK, QD
     Route: 048
  5. CARDYL [Concomitant]
     Dosage: UNK UNK, QD
     Route: 048
  6. UNSPECIFIED MEDICATION [Concomitant]
     Dosage: 20 MG, QD
     Route: 048

REACTIONS (8)
  - ABASIA [None]
  - ABNORMAL BEHAVIOUR [None]
  - BLOOD PARATHYROID HORMONE INCREASED [None]
  - CONFUSIONAL STATE [None]
  - DISORIENTATION [None]
  - HYPERCALCAEMIA [None]
  - PROSTATE CANCER [None]
  - RENAL FAILURE [None]
